FAERS Safety Report 6231650-8 (Version None)
Quarter: 2009Q2

REPORT INFORMATION
  Report Type: 
  Country: None (occurrence: None)
  Receive Date: 20090612
  Receipt Date: 20090612
  Transmission Date: 20091009
  Serious: Yes (Other)
  Sender: FDA-Public Use
  Company Number: None

PATIENT
  Age: 36 Year
  Sex: Female
  Weight: 147.419 kg

DRUGS (8)
  1. OXCARBAZEPINE [Suspect]
     Indication: BIPOLAR DISORDER
     Dosage: 600 MG BID PO
     Route: 048
  2. IMURAN [Concomitant]
  3. MESTINON [Concomitant]
  4. CLONIDINE [Concomitant]
  5. KLONPIN [Concomitant]
  6. ATIVAN [Concomitant]
  7. ACTOS [Concomitant]
  8. LEVOTHYROXINE [Concomitant]

REACTIONS (2)
  - HYPERSEXUALITY [None]
  - INSOMNIA [None]
